FAERS Safety Report 8983800 (Version 1)
Quarter: 2012Q4

REPORT INFORMATION
  Report Type: 
  Country: NO (occurrence: NO)
  Receive Date: 20121224
  Receipt Date: 20121224
  Transmission Date: 20130627
  Serious: Yes (Hospitalization)
  Sender: FDA-Public Use
  Company Number: NO-ROCHE-1169320

PATIENT
  Sex: Male

DRUGS (7)
  1. AVASTIN [Suspect]
     Indication: COLON CANCER
     Route: 065
     Dates: start: 20121105
  2. FLUOROURACIL [Suspect]
     Indication: COLON CANCER
     Route: 065
     Dates: start: 20121105
  3. IRINOTECAN [Suspect]
     Indication: COLON CANCER
     Route: 065
     Dates: start: 20121105
  4. ATROPINE [Concomitant]
     Route: 065
     Dates: start: 20121105
  5. FORTECORTIN [Concomitant]
     Route: 065
     Dates: start: 20121105
  6. ONDANSETRON [Concomitant]
     Route: 065
     Dates: start: 20121105
  7. CALCIUM FOLINATE [Concomitant]
     Route: 065
     Dates: start: 20121105

REACTIONS (2)
  - Muscular weakness [Recovering/Resolving]
  - Muscle twitching [Recovered/Resolved]
